FAERS Safety Report 11083101 (Version 1)
Quarter: 2015Q2

REPORT INFORMATION
  Report Type: Spontaneous
  Country: GB (occurrence: GB)
  Receive Date: 20150501
  Receipt Date: 20150501
  Transmission Date: 20150821
  Serious: Yes (Other)
  Sender: FDA-Public Use
  Company Number: PHHY2015GB048910

PATIENT
  Age: 82 Year
  Sex: Female

DRUGS (1)
  1. METRONIDAZOLE. [Suspect]
     Active Substance: METRONIDAZOLE
     Indication: PRODUCT USED FOR UNKNOWN INDICATION
     Dosage: 400 MG, UNK, AFTER TWO TABLETS DRUG WAS STOPPED
     Route: 065
     Dates: start: 20150409

REACTIONS (8)
  - Dysphagia [Recovering/Resolving]
  - Lip swelling [Not Recovered/Not Resolved]
  - Swollen tongue [Recovering/Resolving]
  - Dyspnoea [Recovering/Resolving]
  - Dizziness [Not Recovered/Not Resolved]
  - Swelling face [Not Recovered/Not Resolved]
  - Feeling drunk [Not Recovered/Not Resolved]
  - Gait disturbance [Not Recovered/Not Resolved]

NARRATIVE: CASE EVENT DATE: 20150409
